FAERS Safety Report 21365152 (Version 1)
Quarter: 2022Q3

REPORT INFORMATION
  Report Type: Report from Study
  Country: US (occurrence: US)
  Receive Date: 20220922
  Receipt Date: 20220922
  Transmission Date: 20221027
  Serious: Yes (Other)
  Sender: FDA-Public Use
  Company Number: US-MYLANLABS-2022M1087806

PATIENT
  Sex: Male
  Weight: 74.5 kg

DRUGS (7)
  1. LEUCOVORIN CALCIUM [Suspect]
     Active Substance: LEUCOVORIN CALCIUM
     Indication: Pancreatic carcinoma metastatic
     Dosage: 400 MILLIGRAM/SQ. METER, EVERY 14 DAYS ON DAY 1 EVERY 14 DAYS
     Route: 042
     Dates: start: 20150313, end: 20150416
  2. ADRUCIL [Suspect]
     Active Substance: FLUOROURACIL
     Indication: Pancreatic carcinoma metastatic
     Dosage: 400 MILLIGRAM/SQ. METER, BOLUS; ON DAY 1 EVERY 14 DAYS
     Route: 065
  3. ADRUCIL [Suspect]
     Active Substance: FLUOROURACIL
     Dosage: 2400 MILLIGRAM/SQ. METER, CONTINUOUS INFUSION OVER 46 HOURS; ON DAY 1 EVERY 14 DAYS, INFUSION
     Route: 065
  4. ELOXATIN [Suspect]
     Active Substance: OXALIPLATIN
     Indication: Pancreatic carcinoma metastatic
     Dosage: 85 MILLIGRAM/SQ. METER, ON DAY 1 EVERY 14 DAYS
     Route: 042
  5. SPRYCEL [Suspect]
     Active Substance: DASATINIB
     Indication: Pancreatic carcinoma metastatic
     Dosage: 150 MILLIGRAM, FLAT DOSE ON DAYS 1-14
     Route: 048
  6. DASATINIB [Concomitant]
     Active Substance: DASATINIB
     Indication: Neoplasm malignant
     Dosage: 150 MILLIGRAM, QD
     Route: 048
     Dates: start: 20150313, end: 20150416
  7. OXALIPLATIN [Concomitant]
     Active Substance: OXALIPLATIN
     Indication: Neoplasm malignant
     Dosage: 85 MILLIGRAM/SQ. METER, Q2W
     Route: 042
     Dates: start: 20150313, end: 20150416

REACTIONS (1)
  - Hydrocephalus [Recovering/Resolving]

NARRATIVE: CASE EVENT DATE: 20150416
